FAERS Safety Report 14536604 (Version 1)
Quarter: 2018Q1

REPORT INFORMATION
  Report Type: Spontaneous
  Country: US (occurrence: US)
  Receive Date: 20180215
  Receipt Date: 20180215
  Transmission Date: 20180509
  Serious: Yes (Hospitalization)
  Sender: FDA-Public Use
  Company Number: None

PATIENT
  Age: 72 Year
  Sex: Female
  Weight: 86 kg

DRUGS (11)
  1. NS [Concomitant]
     Active Substance: SODIUM CHLORIDE
  2. PROPOFOL. [Concomitant]
     Active Substance: PROPOFOL
  3. GLIPIZIDE. [Concomitant]
     Active Substance: GLIPIZIDE
  4. LANTUS [Concomitant]
     Active Substance: INSULIN GLARGINE
  5. CEFAZOLIN [Concomitant]
     Active Substance: CEFAZOLIN
  6. EPHEDRINE. [Concomitant]
     Active Substance: EPHEDRINE
  7. VISIPAQUE [Concomitant]
     Active Substance: IODIXANOL
  8. LIDOCAINE/BUPUV [Concomitant]
  9. ONDANSETRON [Concomitant]
     Active Substance: ONDANSETRON
  10. FENTANYL. [Suspect]
     Active Substance: FENTANYL
     Indication: CARDIAC PACEMAKER INSERTION
     Route: 042
  11. MIDAZOLAM [Suspect]
     Active Substance: MIDAZOLAM HYDROCHLORIDE
     Indication: CARDIAC PACEMAKER INSERTION
     Route: 042

REACTIONS (2)
  - Unresponsive to stimuli [None]
  - Blood glucose decreased [None]

NARRATIVE: CASE EVENT DATE: 20170713
